FAERS Safety Report 8438569-2 (Version None)
Quarter: 2012Q2

REPORT INFORMATION
  Report Type: 
  Country: None (occurrence: None)
  Receive Date: 20120615
  Receipt Date: 20120601
  Transmission Date: 20120825
  Serious: Yes (Hospitalization)
  Sender: FDA-Public Use
  Company Number: GB-RANBAXY-2012R1-56943

PATIENT
  Age: 49 Year
  Weight: 71 kg

DRUGS (1)
  1. MINOCYCLINE HCL [Suspect]
     Indication: ACNE
     Dosage: UNK
     Route: 048
     Dates: end: 20120223

REACTIONS (1)
  - HEPATITIS ACUTE [None]
